FAERS Safety Report 7553122-0 (Version None)
Quarter: 2011Q2

REPORT INFORMATION
  Report Type: 
  Country: None (occurrence: None)
  Receive Date: 20110616
  Receipt Date: 20110603
  Transmission Date: 20111010
  Serious: Yes (Hospitalization)
  Sender: FDA-Public Use
  Company Number: US-MYLANLABS-2011S1011788

PATIENT
  Age: 8 Year
  Sex: Male

DRUGS (21)
  1. NICARDIPINE HCL [Suspect]
     Indication: HYPERTENSION
     Dosage: 1 MCG/KG/MIN ADJUSTED TO TARGET BP OF 120MM HG
     Route: 041
  2. FAMOTIDINE [Concomitant]
     Route: 042
  3. FENTANYL-100 [Concomitant]
     Indication: SEDATION
     Dosage: AS NEEDED
     Route: 040
  4. MORPHINE [Concomitant]
     Dosage: AS NEEDED
     Route: 042
  5. AMLODIPINE [Suspect]
     Indication: HYPERTENSION
     Dosage: 5MG DAILY
     Route: 048
  6. CEFEPIME [Concomitant]
     Route: 042
  7. HEPARIN [Concomitant]
     Indication: CENTRAL VENOUS CATHETERISATION
     Dosage: 2 U/ML AT 3 ML/H
     Route: 041
  8. LIDOCAINE [Concomitant]
     Dosage: 2.5% AS NEEDED
     Route: 061
  9. ONDANSETRON [Concomitant]
     Dosage: AS NEEDED
     Route: 042
  10. THIAMINE [Concomitant]
     Route: 048
  11. VANCOMYCIN [Concomitant]
     Dosage: 300MG INTERMITTENTLY DOSED
     Route: 042
  12. BACITRACIN [Concomitant]
     Dosage: THREE TIMES DAILY APPLICATION
     Route: 061
  13. COTRIM [Concomitant]
     Dosage: TRIMETHOPRIM 40 MG/5ML, SULFAMETHOXAZOLE 200 MG/5ML; 5 ML/12H FOR 3 CONSECUTIVE DAYS
     Route: 065
  14. FENTANYL-100 [Concomitant]
     Dosage: TITRATED TO MAINTAIN SEDATION
     Route: 041
  15. PRILOCAINE HYDROCHLORIDE [Concomitant]
     Dosage: 2.5% AS NEEDED
     Route: 061
  16. VECURONIUM BROMIDE [Concomitant]
     Dosage: AS NEEDED
     Route: 042
  17. DIPHENHYDRAMINE HCL [Concomitant]
     Dosage: AS NEEDED
     Route: 042
  18. MIDAZOLAM HCL [Concomitant]
     Indication: SEDATION
     Route: 041
  19. MIDAZOLAM HCL [Concomitant]
     Dosage: AS NEEDED
     Route: 040
  20. FLUCONAZOLE [Concomitant]
     Route: 042
  21. LEUCOVORIN CALCIUM [Concomitant]
     Route: 042

REACTIONS (1)
  - ANGIOEDEMA [None]
